FAERS Safety Report 14966685 (Version 1)
Quarter: 2018Q2

REPORT INFORMATION
  Report Type: Spontaneous
  Country: GB (occurrence: GB)
  Receive Date: 20180604
  Receipt Date: 20180604
  Transmission Date: 20180711
  Serious: Yes (Life-Threatening, Hospitalization)
  Sender: FDA-Public Use
  Company Number: GB-JNJFOC-20180538023

PATIENT

DRUGS (1)
  1. PARACETAMOL [Suspect]
     Active Substance: ACETAMINOPHEN
     Indication: PRODUCT USED FOR UNKNOWN INDICATION
     Dosage: INGESTED OVER 400ML
     Route: 048

REACTIONS (3)
  - Accidental overdose [Recovered/Resolved]
  - Nonspecific reaction [Recovered/Resolved]
  - Accidental exposure to product by child [Recovered/Resolved]
